FAERS Safety Report 6007393-2 (Version None)
Quarter: 2008Q4

REPORT INFORMATION
  Report Type: 
  Country: None (occurrence: None)
  Receive Date: 20081217
  Receipt Date: 20080408
  Transmission Date: 20090506
  Serious: No
  Sender: FDA-Public Use
  Company Number: US-ASTRAZENECA-2008UW07107

PATIENT
  Age: 78 Year
  Sex: Female
  Weight: 70.3 kg

DRUGS (12)
  1. CRESTOR [Suspect]
     Indication: BLOOD CHOLESTEROL
     Route: 048
     Dates: start: 20080401
  2. BENICAR [Concomitant]
  3. AMLODIPINE [Concomitant]
  4. PLAVIX [Concomitant]
  5. ISOSORBIDE MONONITRATE [Concomitant]
  6. RANITIDINE [Concomitant]
  7. MULTI-VITAMIN [Concomitant]
  8. ASCORBIC ACID [Concomitant]
  9. FLAXSEED OIL [Concomitant]
  10. METAMUCIL [Concomitant]
  11. TYLENOL (CAPLET) [Concomitant]
  12. COMBIGAN [Concomitant]
     Route: 047

REACTIONS (2)
  - DIARRHOEA [None]
  - FLATULENCE [None]
